APPROVED DRUG PRODUCT: LINEZOLID
Active Ingredient: LINEZOLID
Strength: 600MG/300ML (2MG/ML)
Dosage Form/Route: SOLUTION;INTRAVENOUS
Application: A219558 | Product #001 | TE Code: AP
Applicant: CAPLIN STERILES LTD
Approved: Dec 8, 2025 | RLD: No | RS: No | Type: RX